FAERS Safety Report 14969651 (Version 1)
Quarter: 2018Q2

REPORT INFORMATION
  Report Type: Spontaneous
  Country: US (occurrence: US)
  Receive Date: 20180604
  Receipt Date: 20180604
  Transmission Date: 20180711
  Serious: Yes (Other)
  Sender: FDA-Public Use
  Company Number: US-OTSUKA-2017_026984

PATIENT
  Sex: Female

DRUGS (2)
  1. SAMSCA [Suspect]
     Active Substance: TOLVAPTAN
     Indication: BLOOD SODIUM DECREASED
     Dosage: 7.5 MG, QD
     Route: 065
     Dates: start: 2017
  2. SAMSCA [Suspect]
     Active Substance: TOLVAPTAN
     Indication: INAPPROPRIATE ANTIDIURETIC HORMONE SECRETION
     Dosage: 15 MG, QD
     Route: 065
     Dates: start: 2017

REACTIONS (3)
  - Rapid correction of hyponatraemia [Recovered/Resolved]
  - Wrong technique in product usage process [Unknown]
  - Underdose [Unknown]

NARRATIVE: CASE EVENT DATE: 2017
